FAERS Safety Report 6543100-2 (Version None)
Quarter: 2010Q1

REPORT INFORMATION
  Report Type: 
  Country: None (occurrence: None)
  Receive Date: 20100120
  Receipt Date: 20100111
  Transmission Date: 20100710
  Serious: Yes (Hospitalization)
  Sender: FDA-Public Use
  Company Number: PHEH2009US17290

PATIENT
  Sex: Male

DRUGS (1)
  1. EXJADE [Suspect]
     Indication: IRON METABOLISM DISORDER
     Dosage: 875 MG, BID
     Route: 048
     Dates: start: 20091016, end: 20091120

REACTIONS (5)
  - AMMONIA INCREASED [None]
  - HEPATOTOXICITY [None]
  - LOSS OF CONSCIOUSNESS [None]
  - PROSTATE CANCER [None]
  - URINARY TRACT INFECTION [None]
